FAERS Safety Report 23247909 (Version 1)
Quarter: 2023Q4

REPORT INFORMATION
  Report Type: Report from Study
  Country: IN (occurrence: IN)
  Receive Date: 20231130
  Receipt Date: 20231130
  Transmission Date: 20240109
  Serious: Yes (Other)
  Sender: FDA-Public Use
  Company Number: IN-MYLANLABS-2023M1127263

PATIENT
  Sex: Male

DRUGS (2)
  1. FLUOROURACIL [Suspect]
     Active Substance: FLUOROURACIL
     Indication: Penile cancer
     Dosage: 325 MILLIGRAM/SQ. METER, Q3W FROM DAY 1?3, EVERY THREE WEEKLY (INTRAVENOUS BOLUS)
     Route: 042
  2. CISPLATIN [Suspect]
     Active Substance: CISPLATIN
     Indication: Penile cancer
     Dosage: 70 MILLIGRAM/SQ. METER, Q3W (FROM DAY 1, EVERY THREE WEEKLY)
     Route: 065

REACTIONS (1)
  - Neuropathy peripheral [Unknown]
